FAERS Safety Report 25047972 (Version 2)
Quarter: 2025Q2

REPORT INFORMATION
  Report Type: Report from Study
  Country: US (occurrence: US)
  Receive Date: 20250306
  Receipt Date: 20250421
  Transmission Date: 20250717
  Serious: Yes (Other)
  Sender: ABBVIE
  Company Number: US-ABBVIE-6155225

PATIENT
  Age: 66 Year
  Sex: Male

DRUGS (4)
  1. SKYRIZI [Suspect]
     Active Substance: RISANKIZUMAB-RZAA
     Indication: Crohn^s disease
     Route: 058
     Dates: start: 2025
  2. SKYRIZI [Suspect]
     Active Substance: RISANKIZUMAB-RZAA
     Route: 058
     Dates: start: 2025, end: 2025
  3. SKYRIZI [Suspect]
     Active Substance: RISANKIZUMAB-RZAA
     Route: 058
     Dates: start: 2025
  4. DIGITALIS [Concomitant]
     Active Substance: DIGITALIS
     Indication: Product used for unknown indication

REACTIONS (12)
  - Leg amputation [Not Recovered/Not Resolved]
  - Colonic abscess [Unknown]
  - Crohn^s disease [Unknown]
  - Hip arthroplasty [Unknown]
  - Fistula [Unknown]
  - Skin mass [Unknown]
  - Device issue [Unknown]
  - Dehydration [Unknown]
  - Cognitive disorder [Unknown]
  - Vision blurred [Unknown]
  - Colonic fistula [Unknown]
  - Pain [Unknown]

NARRATIVE: CASE EVENT DATE: 20250101
